FAERS Safety Report 20155701 (Version 1)
Quarter: 2021Q4

REPORT INFORMATION
  Report Type: Spontaneous
  Country: US (occurrence: None)
  Receive Date: 20211206
  Receipt Date: 20211206
  Transmission Date: 20220303
  Serious: Yes (Other)
  Sender: FDA-Public Use
  Company Number: None

PATIENT
  Age: 48 Year
  Sex: Female
  Weight: 91.8 kg

DRUGS (1)
  1. REMDESIVIR [Suspect]
     Active Substance: REMDESIVIR
     Indication: COVID-19
     Dates: start: 20211015, end: 20211020

REACTIONS (5)
  - Paraesthesia [None]
  - Chromaturia [None]
  - Chest pain [None]
  - Muscular weakness [None]
  - Confusional state [None]

NARRATIVE: CASE EVENT DATE: 20211015
